FAERS Safety Report 19687339 (Version 3)
Quarter: 2021Q4

REPORT INFORMATION
  Report Type: Report from Study
  Country: JP (occurrence: JP)
  Receive Date: 20210812
  Receipt Date: 20211022
  Transmission Date: 20220303
  Serious: Yes (Death, Other)
  Sender: FDA-Public Use
  Company Number: JP-BAUSCH-BL-2021-026768

PATIENT
  Age: 84 Year
  Sex: Male
  Weight: 55.8 kg

DRUGS (23)
  1. DEMSER [Suspect]
     Active Substance: METYROSINE
     Indication: Blood catecholamines increased
     Route: 048
  2. DEMSER [Suspect]
     Active Substance: METYROSINE
     Route: 048
     Dates: start: 20200127, end: 20200226
  3. DEMSER [Suspect]
     Active Substance: METYROSINE
     Route: 048
     Dates: start: 20200227, end: 20200302
  4. DEMSER [Suspect]
     Active Substance: METYROSINE
     Route: 048
     Dates: start: 20200303, end: 20200305
  5. DEMSER [Suspect]
     Active Substance: METYROSINE
     Route: 048
     Dates: start: 20200306, end: 20200312
  6. DEMSER [Suspect]
     Active Substance: METYROSINE
     Dosage: 5 MONTHS 27 DAYS
     Route: 048
     Dates: start: 20200313, end: 20200908
  7. DEMSER [Suspect]
     Active Substance: METYROSINE
     Dosage: 9 MONTHS 1 DAY
     Route: 048
     Dates: start: 20200917, end: 20210617
  8. CALONAL [Concomitant]
     Active Substance: ACETAMINOPHEN
     Indication: Product used for unknown indication
     Dates: start: 20200917, end: 20210617
  9. CELECOXIB [Concomitant]
     Active Substance: CELECOXIB
     Indication: Product used for unknown indication
     Dates: start: 20200224
  10. TRAVELMIN [Concomitant]
     Indication: Product used for unknown indication
     Dates: start: 20200908
  11. CARDENALIN OD [Concomitant]
     Indication: Product used for unknown indication
  12. DECADRON [Concomitant]
     Active Substance: DEXAMETHASONE
     Indication: Product used for unknown indication
     Dates: start: 20200127
  13. ALFACALCIDOL [Concomitant]
     Active Substance: ALFACALCIDOL
     Indication: Product used for unknown indication
     Dates: start: 20200811
  14. LANSOPRAZOLE [Concomitant]
     Active Substance: LANSOPRAZOLE
     Indication: Product used for unknown indication
     Dates: start: 20200401
  15. HERBALS [Concomitant]
     Active Substance: HERBALS
     Indication: Product used for unknown indication
  16. METHYLCOBALAMIN [Concomitant]
     Active Substance: METHYLCOBALAMIN
     Indication: Product used for unknown indication
     Dates: start: 20200127
  17. MAGNESIUM OXIDE [Concomitant]
     Active Substance: MAGNESIUM OXIDE
     Indication: Product used for unknown indication
  18. BELSOMRA [Concomitant]
     Active Substance: SUVOREXANT
     Indication: Product used for unknown indication
     Dates: start: 20200127
  19. ZOLPIDEM TARTRATE [Concomitant]
     Active Substance: ZOLPIDEM TARTRATE
     Indication: Product used for unknown indication
  20. LORAZEPAM [Concomitant]
     Active Substance: LORAZEPAM
     Indication: Product used for unknown indication
  21. LACTULOSE [Concomitant]
     Active Substance: LACTULOSE
     Indication: Product used for unknown indication
  22. DOXAZOSIN [Concomitant]
     Active Substance: DOXAZOSIN MESYLATE
     Indication: Product used for unknown indication
     Dates: start: 20200127
  23. TAPENTADOL HYDROCHLORIDE [Concomitant]
     Active Substance: TAPENTADOL HYDROCHLORIDE
     Indication: Product used for unknown indication
     Dates: start: 20200811

REACTIONS (2)
  - Malignant neoplasm progression [Fatal]
  - Malaise [Recovering/Resolving]

NARRATIVE: CASE EVENT DATE: 20200305
